FAERS Safety Report 22828145 (Version 3)
Quarter: 2023Q4

REPORT INFORMATION
  Report Type: Spontaneous
  Country: US (occurrence: US)
  Receive Date: 20230816
  Receipt Date: 20231120
  Transmission Date: 20240110
  Serious: No
  Sender: FDA-Public Use
  Company Number: US-PFIZER INC-202300274762

PATIENT
  Age: 27 Year
  Sex: Male

DRUGS (2)
  1. RUXIENCE [Suspect]
     Active Substance: RITUXIMAB-PVVR
     Dosage: UNK
     Dates: start: 20230628
  2. RUXIENCE [Suspect]
     Active Substance: RITUXIMAB-PVVR
     Dosage: UNK
     Dates: start: 20230713

REACTIONS (3)
  - Rash pustular [Unknown]
  - Dermatitis acneiform [Unknown]
  - Folliculitis [Unknown]

NARRATIVE: CASE EVENT DATE: 20230101
